FAERS Safety Report 5029828-4 (Version None)
Quarter: 2006Q2

REPORT INFORMATION
  Report Type: 
  Country: None (occurrence: None)
  Receive Date: 20060620
  Receipt Date: 20060609
  Transmission Date: 20061013
  Serious: Yes (Congenital Anomaly)
  Sender: FDA-Public Use
  Company Number: US-AMGEN-US182540

PATIENT
  Sex: Male

DRUGS (28)
  1. ENBREL [Suspect]
     Indication: RHEUMATOID ARTHRITIS
     Route: 064
     Dates: start: 20050815, end: 20060418
  2. ASPIRIN [Concomitant]
     Route: 064
     Dates: start: 20050815, end: 20060418
  3. PRENATAL VITAMINS [Concomitant]
     Route: 064
     Dates: start: 20050815, end: 20060418
  4. NAPROXEN [Concomitant]
     Route: 064
     Dates: start: 20050815, end: 20051218
  5. ALEVE (CAPLET) [Concomitant]
     Route: 064
     Dates: start: 20051225, end: 20060103
  6. PREDNISONE [Concomitant]
     Route: 064
     Dates: start: 20050827, end: 20051223
  7. PREDNISONE [Concomitant]
     Route: 064
     Dates: start: 20050816, end: 20050824
  8. PREDNISONE [Concomitant]
     Route: 064
     Dates: start: 20051224, end: 20060209
  9. PREDNISONE [Concomitant]
     Route: 064
     Dates: start: 20060210, end: 20060222
  10. PREDNISONE [Concomitant]
     Route: 064
     Dates: start: 20060223, end: 20060304
  11. PREDNISONE [Concomitant]
     Route: 064
     Dates: start: 20060305, end: 20060314
  12. PREDNISONE [Concomitant]
     Route: 064
     Dates: start: 20060315, end: 20060404
  13. PREDNISONE [Concomitant]
     Route: 064
     Dates: start: 20060405, end: 20060418
  14. ASCORBIC ACID [Concomitant]
     Route: 064
     Dates: start: 20050815, end: 20051205
  15. IRON [Concomitant]
     Route: 064
     Dates: start: 20050815, end: 20060418
  16. AMPICILLIN SODIUM [Concomitant]
     Route: 064
     Dates: start: 20051024, end: 20051031
  17. ASCORBIC ACID [Concomitant]
     Route: 064
     Dates: start: 20051206, end: 20060418
  18. CALCIUM WITH VITAMIN D [Concomitant]
     Route: 064
     Dates: start: 20051228, end: 20060418
  19. FISH OIL [Concomitant]
     Route: 064
     Dates: start: 20051206, end: 20060131
  20. INFLUENZA VACCINE [Concomitant]
     Route: 064
     Dates: start: 20051107, end: 20051107
  21. LOPERAMIDE [Concomitant]
     Route: 064
     Dates: start: 20051118, end: 20051119
  22. LOPERAMIDE [Concomitant]
     Route: 064
     Dates: start: 20051119, end: 20051119
  23. MULTIVITAMIN [Concomitant]
     Route: 064
     Dates: start: 20060201, end: 20060418
  24. FISH OIL [Concomitant]
     Route: 064
     Dates: start: 20060201, end: 20060418
  25. PENICILLIN G [Concomitant]
     Route: 064
     Dates: start: 20060125, end: 20060130
  26. RANITIDINE [Concomitant]
     Route: 064
     Dates: start: 20050815, end: 20060418
  27. TYLENOL (CAPLET) [Concomitant]
     Route: 064
     Dates: start: 20060329, end: 20060331
  28. TUMS [Concomitant]
     Route: 064
     Dates: start: 20060329, end: 20060330

REACTIONS (2)
  - CONGENITAL GASTRIC ANOMALY [None]
  - DRUG EXPOSURE DURING PREGNANCY [None]
